FAERS Safety Report 4404205-5 (Version None)
Quarter: 2004Q3

REPORT INFORMATION
  Report Type: 
  Country: None (occurrence: None)
  Receive Date: 20040719
  Receipt Date: 20040705
  Transmission Date: 20050211
  Serious: Yes (Hospitalization)
  Sender: FDA-Public Use
  Company Number: 02100-JPN-04-0197

PATIENT
  Age: 84 Year
  Sex: Female

DRUGS (10)
  1. CILOSTAZOL [Suspect]
     Indication: CEREBRAL INFARCTION
     Dosage: 100 MG ORAL
     Route: 048
     Dates: start: 20040318, end: 20040628
  2. CILOSTAZOL [Suspect]
     Indication: CEREBRAL INFARCTION
     Dosage: 100 MG ORAL
     Route: 048
     Dates: start: 20020701
  3. FUROSEMIDE [Concomitant]
  4. RANITIDINE HYDROCHLORIDE [Concomitant]
  5. CARVEDILOL [Concomitant]
  6. AMLODIPINE BESYLATE [Concomitant]
  7. SANACTASE COMBINED DRUG [Concomitant]
  8. DOMPERIDONE [Concomitant]
  9. SODIUM RISEDRONATE HYDRATE [Concomitant]
  10. APOETIN ALFA (GENETICAL RECOMBINATION) [Concomitant]

REACTIONS (5)
  - DIFFICULTY IN WALKING [None]
  - FALL [None]
  - NEPHROGENIC ANAEMIA [None]
  - SUBDURAL HAEMATOMA [None]
  - URINARY INCONTINENCE [None]
